FAERS Safety Report 4398463-3 (Version None)
Quarter: 2004Q3

REPORT INFORMATION
  Report Type: 
  Country: None (occurrence: None)
  Receive Date: 20040713
  Receipt Date: 20040702
  Transmission Date: 20050211
  Serious: Yes (Hospitalization)
  Sender: FDA-Public Use
  Company Number: USA-2004-0015923

PATIENT
  Age: 73 Year
  Sex: Female

DRUGS (1)
  1. SENNOSIDES (SIMILAR TO ANDA 9-939) (SENNOSIDE A+B) [Suspect]

REACTIONS (21)
  - ACTINOMYCOTIC PULMONARY INFECTION [None]
  - ASPERGILLOSIS [None]
  - BLOOD ALBUMIN DECREASED [None]
  - CREATINE PHOSPHOKINASE DECREASED [None]
  - CYTOMEGALOVIRUS ANTIBODY POSITIVE [None]
  - DEHYDRATION [None]
  - DRUG HYPERSENSITIVITY [None]
  - EOSINOPHIL PERCENTAGE INCREASED [None]
  - HAEMOGLOBIN DECREASED [None]
  - HERPES SIMPLEX SEROLOGY POSITIVE [None]
  - LYMPHOCYTE PERCENTAGE DECREASED [None]
  - LYMPHOCYTE STIMULATION TEST POSITIVE [None]
  - MONOCYTE PERCENTAGE INCREASED [None]
  - PARAPSORIASIS [None]
  - PITYRIASIS LICHENOIDES ET VARIOLIFORMIS ACUTA [None]
  - PLATELET COUNT DECREASED [None]
  - PROTEIN TOTAL DECREASED [None]
  - PSEUDOMONAS INFECTION [None]
  - RED BLOOD CELL COUNT DECREASED [None]
  - RENAL FAILURE [None]
  - STAPHYLOCOCCAL INFECTION [None]
